FAERS Safety Report 19489685 (Version 1)
Quarter: 2021Q3

REPORT INFORMATION
  Report Type: Spontaneous
  Country: RO (occurrence: RO)
  Receive Date: 20210704
  Receipt Date: 20210704
  Transmission Date: 20211014
  Serious: Yes (Other)
  Sender: FDA-Public Use
  Company Number: RO-LUPIN PHARMACEUTICALS INC.-2021-11429

PATIENT
  Sex: Male

DRUGS (10)
  1. LOPINAVIR/RITONAVIR [Suspect]
     Active Substance: LOPINAVIR\RITONAVIR
     Dosage: RESTARTED
     Route: 064
     Dates: start: 201104
  2. LAMIVUDINE AND ZIDOVUDINE [Suspect]
     Active Substance: LAMIVUDINE\ZIDOVUDINE
     Dosage: UNK (RE?STARTED)
     Route: 064
     Dates: start: 201104
  3. LOPINAVIR/RITONAVIR [Suspect]
     Active Substance: LOPINAVIR\RITONAVIR
     Indication: HIV INFECTION
     Dosage: UNK
     Route: 064
     Dates: start: 201101, end: 201104
  4. ISONIAZID. [Suspect]
     Active Substance: ISONIAZID
     Indication: DISSEMINATED TUBERCULOSIS
     Dosage: UNK
     Route: 064
     Dates: start: 201104
  5. ENFUVIRTIDE. [Suspect]
     Active Substance: ENFUVIRTIDE
     Indication: HIV INFECTION
     Dosage: UNK
     Route: 064
     Dates: start: 201104
  6. LAMIVUDINE AND ZIDOVUDINE [Suspect]
     Active Substance: LAMIVUDINE\ZIDOVUDINE
     Indication: HIV INFECTION
     Dosage: UNK
     Route: 064
     Dates: start: 201101, end: 201104
  7. PYRAZINAMIDE. [Suspect]
     Active Substance: PYRAZINAMIDE
     Indication: DISSEMINATED TUBERCULOSIS
     Dosage: UNK
     Route: 064
     Dates: start: 201104
  8. ETHAMBUTOL [Suspect]
     Active Substance: ETHAMBUTOL HYDROCHLORIDE
     Indication: DISSEMINATED TUBERCULOSIS
     Dosage: UNK
     Route: 064
     Dates: start: 201104
  9. MYCOBUTIN [Suspect]
     Active Substance: RIFABUTIN
     Indication: DISSEMINATED TUBERCULOSIS
     Dosage: UNK
     Route: 064
     Dates: start: 201104
  10. STREPTOMYCIN [Suspect]
     Active Substance: STREPTOMYCIN SULFATE
     Indication: DISSEMINATED TUBERCULOSIS
     Dosage: UNK
     Route: 064
     Dates: start: 201105

REACTIONS (4)
  - Premature baby [Unknown]
  - Apgar score low [Unknown]
  - Foetal exposure during pregnancy [Unknown]
  - Low birth weight baby [Unknown]

NARRATIVE: CASE EVENT DATE: 2011
